FAERS Safety Report 6567940-9 (Version None)
Quarter: 2010Q1

REPORT INFORMATION
  Report Type: 
  Country: None (occurrence: None)
  Receive Date: 20100203
  Receipt Date: 20100122
  Transmission Date: 20100710
  Serious: Yes (Other)
  Sender: FDA-Public Use
  Company Number: GB-PFIZER INC-2010008788

PATIENT
  Sex: Female

DRUGS (2)
  1. DOXYCYCLINE MONOHYDRATE [Suspect]
     Indication: MALARIA PROPHYLAXIS
     Dosage: 100 MG, 1X/DAY
     Route: 048
     Dates: start: 20090901, end: 20091201
  2. ORAL CONTRACEPTIVE NOS [Concomitant]
     Dosage: UNK
     Route: 048

REACTIONS (2)
  - PAIN [None]
  - PHOTOSENSITIVITY REACTION [None]
